FAERS Safety Report 8539056-3 (Version None)
Quarter: 2012Q3

REPORT INFORMATION
  Report Type: 
  Country: None (occurrence: None)
  Receive Date: 20120726
  Receipt Date: 20120718
  Transmission Date: 20120928
  Serious: Yes (Hospitalization)
  Sender: FDA-Public Use
  Company Number: US-JNJFOC-20120705602

PATIENT
  Sex: Male

DRUGS (22)
  1. WELCHOL [Concomitant]
  2. ZOFRAN [Concomitant]
  3. PECTIN [Concomitant]
  4. OMEPRAZOLE [Concomitant]
  5. ISOTONIC [Concomitant]
  6. QUESTRAN [Concomitant]
  7. LEXAPRO [Concomitant]
  8. ELIDEL [Concomitant]
     Route: 061
  9. COMBIVENT [Concomitant]
  10. REMICADE [Suspect]
     Indication: INFLAMMATORY BOWEL DISEASE
     Route: 042
     Dates: start: 20070324, end: 20071001
  11. INDERAL [Concomitant]
  12. IMODIUM [Concomitant]
  13. BENTYL [Concomitant]
  14. CLARITIN [Concomitant]
  15. SINGULAIR [Concomitant]
  16. PROBIOTICS [Concomitant]
  17. ANTIBIOTICS [Concomitant]
     Indication: INFLAMMATORY BOWEL DISEASE
  18. TACROLIMUS [Concomitant]
  19. ROXICET [Concomitant]
  20. LOPRESSOR [Concomitant]
  21. PROAIR HFA [Concomitant]
  22. CALMOSEPTINE [Concomitant]
     Indication: ECZEMA

REACTIONS (1)
  - DIARRHOEA [None]
